FAERS Safety Report 9840945 (Version 3)
Quarter: 2014Q1

REPORT INFORMATION
  Report Type: Spontaneous
  Country: BR (occurrence: BR)
  Receive Date: 20140124
  Receipt Date: 20140218
  Transmission Date: 20141002
  Serious: Yes (Other)
  Sender: FDA-Public Use
  Company Number: BR-ELI_LILLY_AND_COMPANY-BR201310001734

PATIENT
  Age: 79 Year
  Sex: Male
  Weight: 80 kg

DRUGS (28)
  1. HUMALOG [Suspect]
     Indication: TYPE 2 DIABETES MELLITUS
     Dosage: 16 IU, QD
     Route: 058
     Dates: start: 2007
  2. HUMALOG [Suspect]
     Dosage: 20 IU, QD
     Route: 058
     Dates: start: 2007
  3. HUMALOG [Suspect]
     Dosage: 10 IU, QD
     Route: 058
     Dates: start: 2007
  4. HUMALOG [Suspect]
     Dosage: 16 IU, QD
     Route: 058
     Dates: start: 201309
  5. HUMALOG [Suspect]
     Dosage: 20 IU, QD
     Route: 058
     Dates: start: 201309
  6. HUMALOG [Suspect]
     Dosage: 10 IU, QD
     Route: 058
     Dates: start: 201309
  7. HUMALOG [Suspect]
     Dosage: 10 IU, EACH MORNING
     Route: 058
  8. HUMALOG [Suspect]
     Dosage: 16 IU, QD
     Route: 058
  9. HUMALOG [Suspect]
     Dosage: 10 IU, EACH EVENING
     Route: 058
  10. HUMULIN N [Suspect]
     Indication: TYPE 2 DIABETES MELLITUS
     Dosage: 30 IU, QD
     Route: 065
     Dates: start: 2004
  11. HUMULIN N [Suspect]
     Dosage: 20 IU, EACH EVENING
     Route: 065
     Dates: start: 2004
  12. NOVOLIN N [Suspect]
     Indication: TYPE 2 DIABETES MELLITUS
     Dosage: 30 IU, QD
     Route: 065
     Dates: start: 2004
  13. NOVOLIN N [Suspect]
     Dosage: 20 IU, EACH EVENING
     Route: 065
  14. NEXIUM                             /01479303/ [Concomitant]
     Indication: PRODUCT USED FOR UNKNOWN INDICATION
     Dosage: 20 DF, UNKNOWN
     Route: 065
  15. ANDROCUR [Concomitant]
     Indication: PRODUCT USED FOR UNKNOWN INDICATION
     Dosage: UNK, OTHER
     Route: 065
  16. ATORVASTATIN CALCIUM [Concomitant]
     Indication: PRODUCT USED FOR UNKNOWN INDICATION
     Dosage: UNK, UNKNOWN
     Route: 065
  17. GLIFAGE [Concomitant]
     Indication: PRODUCT USED FOR UNKNOWN INDICATION
     Dosage: 500 DF, UNKNOWN
     Route: 065
  18. GLIFAGE [Concomitant]
     Dosage: 1000 MG, QD
     Route: 065
  19. GLIFAGE [Concomitant]
     Dosage: 1500 MG, QD
     Route: 065
  20. ASPIRINE [Concomitant]
     Indication: PRODUCT USED FOR UNKNOWN INDICATION
     Dosage: 100 MG, UNKNOWN
     Route: 065
  21. PROPRANOLOL [Concomitant]
     Indication: PRODUCT USED FOR UNKNOWN INDICATION
     Dosage: 40 MG, UNKNOWN
     Route: 065
  22. LOPRESS                            /00338402/ [Concomitant]
     Indication: PRODUCT USED FOR UNKNOWN INDICATION
     Dosage: 8 MG, UNKNOWN
     Route: 065
  23. MOTILIUM                           /00498201/ [Concomitant]
     Indication: PRODUCT USED FOR UNKNOWN INDICATION
     Dosage: 10 MG, UNKNOWN
     Route: 065
  24. SIFROL [Concomitant]
     Indication: PRODUCT USED FOR UNKNOWN INDICATION
     Dosage: 0.125 DF, UNKNOWN
     Route: 065
  25. TRAZODONE [Concomitant]
     Indication: PRODUCT USED FOR UNKNOWN INDICATION
     Dosage: 50 MG, UNKNOWN
     Route: 065
  26. COMPLEX B                          /00653501/ [Concomitant]
     Indication: PRODUCT USED FOR UNKNOWN INDICATION
     Dosage: 1 DF, UNKNOWN
     Route: 065
  27. MONOCORDIL [Concomitant]
     Indication: PRODUCT USED FOR UNKNOWN INDICATION
     Dosage: UNK, UNKNOWN
     Route: 065
  28. LIRAGLUTIDE [Concomitant]
     Indication: PRODUCT USED FOR UNKNOWN INDICATION
     Dosage: UNK, QD
     Route: 065
     Dates: start: 201109, end: 201203

REACTIONS (10)
  - Pulmonary embolism [Unknown]
  - Urinary incontinence [Not Recovered/Not Resolved]
  - Abdominal distension [Not Recovered/Not Resolved]
  - Blood glucose increased [Unknown]
  - Glycosylated haemoglobin increased [Unknown]
  - High density lipoprotein decreased [Unknown]
  - Diabetic neuropathy [Unknown]
  - Malaise [Unknown]
  - Nausea [Unknown]
  - Weight decreased [Unknown]
